FAERS Safety Report 13064244 (Version 1)
Quarter: 2016Q4

REPORT INFORMATION
  Report Type: Spontaneous
  Country: US (occurrence: US)
  Receive Date: 20161224
  Receipt Date: 20161224
  Transmission Date: 20170207
  Serious: Yes (Life-Threatening, Hospitalization)
  Sender: FDA-Public Use
  Company Number: None

PATIENT
  Age: 15 Year
  Sex: Male
  Weight: 57.6 kg

DRUGS (3)
  1. ABILIFY [Suspect]
     Active Substance: ARIPIPRAZOLE
     Indication: ATTENTION DEFICIT/HYPERACTIVITY DISORDER
     Dosage: QUANTITY:1 TABLET(S); TWICE A DAY; ORAL?
     Route: 048
     Dates: start: 20150310, end: 20161204
  2. STRATTERA [Concomitant]
     Active Substance: ATOMOXETINE HYDROCHLORIDE
  3. LATUNDA [Concomitant]

REACTIONS (5)
  - Suicide attempt [None]
  - Headache [None]
  - Pulmonary oedema [None]
  - Amnesia [None]
  - Mental impairment [None]

NARRATIVE: CASE EVENT DATE: 20161204
